FAERS Safety Report 12156682 (Version 2)
Quarter: 2016Q1

REPORT INFORMATION
  Report Type: Spontaneous
  Country: GR (occurrence: GR)
  Receive Date: 20160307
  Receipt Date: 20160310
  Transmission Date: 20160526
  Serious: Yes (Hospitalization)
  Sender: FDA-Public Use
  Company Number: PHHY2016GR028088

PATIENT
  Age: 85 Year
  Sex: Female

DRUGS (1)
  1. DIGOXIN. [Suspect]
     Active Substance: DIGOXIN
     Indication: ATRIAL FIBRILLATION
     Dosage: UNK
     Route: 065

REACTIONS (8)
  - Chest discomfort [Recovered/Resolved]
  - Atrioventricular block [Recovered/Resolved]
  - Toxicity to various agents [Recovered/Resolved]
  - Nausea [Recovered/Resolved]
  - Bradyarrhythmia [Recovered/Resolved]
  - Syncope [Recovered/Resolved]
  - Hypertrophic cardiomyopathy [Recovered/Resolved]
  - Dizziness [Recovered/Resolved]
